FAERS Safety Report 15668865 (Version 1)
Quarter: 2018Q4

REPORT INFORMATION
  Report Type: Report from Study
  Country: US (occurrence: US)
  Receive Date: 20181129
  Receipt Date: 20181129
  Transmission Date: 20190205
  Serious: No
  Sender: FDA-Public Use
  Company Number: US-ROCHE-2222048

PATIENT
  Sex: Female

DRUGS (1)
  1. OCREVUS [Suspect]
     Active Substance: OCRELIZUMAB
     Indication: MULTIPLE SCLEROSIS
     Dosage: ON 02/NOV/2017, SHE RECEIVED HER FIRST HALF DOSE
     Route: 065
     Dates: start: 20171102

REACTIONS (1)
  - Fungal infection [Recovered/Resolved]
